FAERS Safety Report 7956348-7 (Version None)
Quarter: 2011Q4

REPORT INFORMATION
  Report Type: 
  Country: None (occurrence: None)
  Receive Date: 20111205
  Receipt Date: 20111130
  Transmission Date: 20120403
  Serious: Yes (Disabling)
  Sender: FDA-Public Use
  Company Number: CA-PFIZER INC-2011269574

PATIENT
  Age: 52 Year
  Sex: Female

DRUGS (9)
  1. LYRICA [Suspect]
     Indication: FIBROMYALGIA
     Dosage: 75 MG, 1X/DAY AT BEDTIME
     Route: 048
     Dates: start: 20110401
  2. LYRICA [Suspect]
     Dosage: 75 MG, 4X/DAY
     Route: 048
  3. LYRICA [Suspect]
     Dosage: 75 MG, 2X/DAY
     Route: 048
  4. LYRICA [Suspect]
     Dosage: 75 MG, 3X/DAY
     Route: 048
  5. FLOVENT [Concomitant]
     Indication: ASTHMA
     Dosage: 250 UG 1 PUFF, 2X/DAY
  6. LYRICA [Suspect]
     Dosage: 75 MG, 1X/DAY
     Dates: end: 20110901
  7. XANAX [Concomitant]
     Indication: INSOMNIA
     Dosage: 0.25 MG (HALF A 0.5MG TABLET), 1X/DAY AT BEDTIME
  8. VENTOLIN [Concomitant]
     Indication: ASTHMA
     Dosage: UNK
  9. BOTOX [Concomitant]
     Indication: HEADACHE
     Dosage: 1 INJECTION EVERY 4 MONTHS

REACTIONS (10)
  - FATIGUE [None]
  - FEELING DRUNK [None]
  - MUSCULAR WEAKNESS [None]
  - VISION BLURRED [None]
  - FEELING ABNORMAL [None]
  - PAIN [None]
  - FALL [None]
  - DRUG INEFFECTIVE [None]
  - ACTIVITIES OF DAILY LIVING IMPAIRED [None]
  - DEPRESSED MOOD [None]
